FAERS Safety Report 7589784-1 (Version None)
Quarter: 2011Q3

REPORT INFORMATION
  Report Type: 
  Country: None (occurrence: None)
  Receive Date: 20110705
  Receipt Date: 20110621
  Transmission Date: 20111222
  Serious: Yes (Hospitalization)
  Sender: FDA-Public Use
  Company Number: B0729896A

PATIENT
  Sex: Male
  Weight: 71 kg

DRUGS (14)
  1. BACTRIM DS [Concomitant]
     Dates: start: 20110303
  2. CHOP CHEMOTHERAPY [Suspect]
     Indication: DIFFUSE LARGE B-CELL LYMPHOMA
     Route: 065
     Dates: start: 20110310
  3. ZOVIRAX [Concomitant]
     Indication: ANTIVIRAL PROPHYLAXIS
     Dates: start: 20110303
  4. D-CURE [Concomitant]
     Indication: VITAMIN D DEFICIENCY
     Dates: start: 20110402
  5. ARANESP [Concomitant]
     Dates: start: 20110411
  6. METHOTREXATE [Concomitant]
  7. HYDROCORTISONE [Concomitant]
     Dates: start: 20040101
  8. DIHYDROERGOTAMINE MESYLATE [Concomitant]
     Indication: ORTHOSTATIC HYPOTENSION
     Dates: start: 20110101
  9. XALATAN [Concomitant]
     Indication: GLAUCOMA
     Dates: start: 20080601
  10. ALLOPURINOL [Concomitant]
     Dates: start: 20110303
  11. ENOXAPARIN SODIUM [Concomitant]
     Indication: ATRIAL FIBRILLATION
     Dates: start: 20110101
  12. MOVIPREP [Concomitant]
     Indication: CONSTIPATION
     Dates: start: 20110221
  13. OFATUMUMAB [Suspect]
     Indication: DIFFUSE LARGE B-CELL LYMPHOMA
     Dosage: 1000MG PER DAY
     Route: 065
     Dates: start: 20110310
  14. ZANTAC [Concomitant]
     Dates: start: 20110303

REACTIONS (1)
  - FEBRILE NEUTROPENIA [None]
